FAERS Safety Report 8313148-6 (Version None)
Quarter: 2012Q2

REPORT INFORMATION
  Report Type: 
  Country: None (occurrence: None)
  Receive Date: 20120426
  Receipt Date: 20120425
  Transmission Date: 20120825
  Serious: Yes (Other)
  Sender: FDA-Public Use
  Company Number: US-PFIZER INC-2012097617

PATIENT
  Sex: Female

DRUGS (8)
  1. GABAPENTIN [Suspect]
     Dosage: UNK
  2. METFORMIN [Concomitant]
     Dosage: UNK
  3. BUPROPION [Concomitant]
     Dosage: UNK
  4. TRAMADOL [Concomitant]
     Dosage: UNK
  5. AMLODIPINE [Concomitant]
     Dosage: UNK
  6. OXYCODONE [Concomitant]
     Dosage: UNK
  7. LISINOPRIL [Concomitant]
     Dosage: UNK
  8. ASPIRIN [Concomitant]
     Dosage: UNK

REACTIONS (3)
  - FATIGUE [None]
  - PAIN [None]
  - MYALGIA [None]
